FAERS Safety Report 7725472-6 (Version None)
Quarter: 2011Q3

REPORT INFORMATION
  Report Type: 
  Country: None (occurrence: None)
  Receive Date: 20110902
  Receipt Date: 20110801
  Transmission Date: 20111222
  Serious: No
  Sender: FDA-Public Use
  Company Number: US-BRISTOL-MYERS SQUIBB COMPANY-15939069

PATIENT
  Age: 61 Year
  Sex: Male
  Weight: 107 kg

DRUGS (5)
  1. HYDROCHLOROTHIAZIDE [Concomitant]
  2. LIPITOR [Concomitant]
  3. PLAVIX [Concomitant]
  4. KOMBIGLYZE XR [Suspect]
     Dosage: 1DF:2.5/1000 MG  DOSE INCREASED TO 5/500 MG
     Dates: start: 20110701
  5. TOPROL-XL [Concomitant]

REACTIONS (1)
  - DRUG INEFFECTIVE [None]
